FAERS Safety Report 6584979-8 (Version None)
Quarter: 2010Q1

REPORT INFORMATION
  Report Type: 
  Country: None (occurrence: None)
  Receive Date: 20100204
  Receipt Date: 20100128
  Transmission Date: 20100710
  Serious: Yes (Hospitalization)
  Sender: FDA-Public Use
  Company Number: POMP-1000561

PATIENT
  Age: 17 Month
  Sex: Male
  Weight: 12 kg

DRUGS (2)
  1. MYOZYME [Suspect]
     Indication: GLYCOGEN STORAGE DISEASE TYPE II
     Dosage: 250 MG, Q2W, INTRAVENOUS
     Route: 042
     Dates: start: 20080415
  2. RITUXIMAB (RITUXIMAB) [Concomitant]

REACTIONS (27)
  - CARDIAC ARREST [None]
  - CLOSTRIDIAL INFECTION [None]
  - DIAPHRAGM MUSCLE WEAKNESS [None]
  - DISEASE PROGRESSION [None]
  - DISEASE RECURRENCE [None]
  - GRUNTING [None]
  - HYPERHIDROSIS [None]
  - INCREASED UPPER AIRWAY SECRETION [None]
  - INFUSION RELATED REACTION [None]
  - LUNG INFECTION PSEUDOMONAL [None]
  - MORAXELLA INFECTION [None]
  - OXYGEN SATURATION DECREASED [None]
  - PALLOR [None]
  - PLEURAL EFFUSION [None]
  - PNEUMONIA [None]
  - PSEUDOMONAS INFECTION [None]
  - RASH [None]
  - RESPIRATION ABNORMAL [None]
  - RESPIRATORY ARREST [None]
  - RESPIRATORY DISTRESS [None]
  - RESPIRATORY FAILURE [None]
  - RETCHING [None]
  - STAPHYLOCOCCAL INFECTION [None]
  - TACHYCARDIA [None]
  - TRACHEITIS [None]
  - VOCAL CORD PARALYSIS [None]
  - VOMITING [None]
